FAERS Safety Report 17111411 (Version 4)
Quarter: 2020Q1

REPORT INFORMATION
  Report Type: Spontaneous
  Country: US (occurrence: US)
  Receive Date: 20191204
  Receipt Date: 20200227
  Transmission Date: 20200409
  Serious: No
  Sender: FDA-Public Use
  Company Number: US-DSJP-DSU-2019-145412

PATIENT

DRUGS (1)
  1. TURALIO [Suspect]
     Active Substance: PEXIDARTINIB HYDROCHLORIDE
     Indication: SYNOVITIS
     Dosage: 200 MG, BID
     Route: 048
     Dates: start: 20191104

REACTIONS (13)
  - Muscle spasms [Unknown]
  - Knee deformity [Unknown]
  - Nausea [Unknown]
  - Fatigue [Unknown]
  - Rash pruritic [Unknown]
  - Bone pain [Unknown]
  - Off label use [Not Recovered/Not Resolved]
  - Weight increased [Unknown]
  - Dry mouth [Unknown]
  - Abdominal pain upper [Unknown]
  - Diarrhoea [Unknown]
  - Limb discomfort [Unknown]
  - Swelling [Recovering/Resolving]

NARRATIVE: CASE EVENT DATE: 2019
